FAERS Safety Report 11250330 (Version 2)
Quarter: 2015Q3

REPORT INFORMATION
  Report Type: Spontaneous
  Country: US (occurrence: US)
  Receive Date: 20150708
  Receipt Date: 20150803
  Transmission Date: 20151125
  Serious: Yes (Other)
  Sender: FDA-Public Use
  Company Number: US-ELI_LILLY_AND_COMPANY-US201002006397

PATIENT
  Age: 38 Year
  Sex: Male

DRUGS (2)
  1. ZYPREXA INTRAMUSCULAR [Suspect]
     Active Substance: OLANZAPINE
     Dates: start: 2008
  2. HALDOL [Interacting]
     Active Substance: HALOPERIDOL

REACTIONS (2)
  - Drug interaction [Unknown]
  - Neuroleptic malignant syndrome [Unknown]

NARRATIVE: CASE EVENT DATE: 2008
